FAERS Safety Report 13465161 (Version 1)
Quarter: 2017Q2

REPORT INFORMATION
  Report Type: Spontaneous
  Country: US (occurrence: US)
  Receive Date: 20170421
  Receipt Date: 20170421
  Transmission Date: 20170830
  Serious: No
  Sender: FDA-Public Use
  Company Number: US-TEVA-755575ACC

PATIENT
  Age: 82 Year
  Sex: Male

DRUGS (5)
  1. ZOLPIDEM TARTRATE. [Suspect]
     Active Substance: ZOLPIDEM TARTRATE
     Indication: INSOMNIA
     Dates: start: 20170326
  2. TOPROL XL [Concomitant]
     Active Substance: METOPROLOL SUCCINATE
  3. MIRTAZAPINE. [Concomitant]
     Active Substance: MIRTAZAPINE
     Dosage: ONCE SOMETIME LAST WEEKEND
  4. COZAAR [Concomitant]
     Active Substance: LOSARTAN POTASSIUM
  5. CARTIA XT [Concomitant]
     Active Substance: DILTIAZEM HYDROCHLORIDE

REACTIONS (3)
  - Wrong technique in product usage process [Unknown]
  - Intentional product misuse [Unknown]
  - Nocturia [Recovered/Resolved]

NARRATIVE: CASE EVENT DATE: 201703
